FAERS Safety Report 11636837 (Version 1)
Quarter: 2015Q4

REPORT INFORMATION
  Report Type: Spontaneous
  Country: US (occurrence: US)
  Receive Date: 20151016
  Receipt Date: 20151016
  Transmission Date: 20160304
  Serious: No
  Sender: FDA-Public Use
  Company Number: US-GALDERMA-US15005849

PATIENT
  Age: 76 Year
  Sex: Female

DRUGS (6)
  1. SOOLANTRA [Suspect]
     Active Substance: IVERMECTIN
     Indication: LICE INFESTATION
     Dosage: 1%
     Route: 061
     Dates: start: 20150710, end: 20150710
  2. SOOLANTRA [Suspect]
     Active Substance: IVERMECTIN
     Indication: LICE INFESTATION
     Dosage: 1%
     Route: 061
     Dates: start: 201506, end: 201506
  3. DHS CONDITIONER [Concomitant]
     Indication: THERAPEUTIC SKIN CARE TOPICAL
     Route: 061
  4. DIAL ANTIBATERIAL BODY WASH FOR MEN [Concomitant]
     Indication: THERAPEUTIC SKIN CARE TOPICAL
     Route: 061
  5. KETOCONAZOLE. [Concomitant]
     Active Substance: KETOCONAZOLE
     Indication: THERAPEUTIC SKIN CARE TOPICAL
     Route: 061
  6. SOOLANTRA [Suspect]
     Active Substance: IVERMECTIN
     Indication: LICE INFESTATION
     Dosage: 1%
     Route: 061
     Dates: start: 201505, end: 201506

REACTIONS (3)
  - Intentional overdose [Recovered/Resolved]
  - Inappropriate schedule of drug administration [Recovered/Resolved]
  - Product use issue [Recovered/Resolved]

NARRATIVE: CASE EVENT DATE: 201505
